FAERS Safety Report 10204211 (Version 1)
Quarter: 2014Q2

REPORT INFORMATION
  Report Type: Report from Study
  Country: GB (occurrence: GB)
  Receive Date: 20140529
  Receipt Date: 20140529
  Transmission Date: 20141212
  Serious: Yes (Hospitalization, Other)
  Sender: FDA-Public Use
  Company Number: GB-ROCHE-1408688

PATIENT
  Sex: 0

DRUGS (3)
  1. INTERFERON ALFA-2A [Suspect]
     Indication: RENAL CELL CARCINOMA
     Dosage: 6 MIU/M2 -  1 X WK (ON DAY 1) WEEK 1; 3 X WK (ON DAYS 1,3,5) ON WEEKS 2 + 3; 1 X WK (ON DAY 1) WEEK
     Route: 058
  2. INTERLEUKIN-2 [Suspect]
     Indication: RENAL CELL CARCINOMA
     Dosage: 20 MIU/M2 - 3 X WK (ON DAYS 3,4,5) ON WEEK 1; 5 MIU/M2 3 X WK (ON DAYS 1,3,5) ON WEEK 2 + 3; 3 X WK
     Route: 065
  3. FLUOROURACIL [Suspect]
     Indication: RENAL CELL CARCINOMA
     Dosage: 750 MIU/M2 -  1 X WK (ON DAY 1) ON WEEK 5-8
     Route: 042

REACTIONS (18)
  - Abdominal discomfort [Unknown]
  - Renal impairment [Unknown]
  - Oedema [Unknown]
  - Pneumonitis [Unknown]
  - Neutropenic sepsis [Unknown]
  - Fatigue [Unknown]
  - Malaise [Unknown]
  - Nausea [Unknown]
  - Neuropathy peripheral [Unknown]
  - Pyrexia [Unknown]
  - Vomiting [Unknown]
  - Diarrhoea [Unknown]
  - Influenza like illness [Unknown]
  - Hypersensitivity [Unknown]
  - Myalgia [Unknown]
  - Arthralgia [Unknown]
  - Pulmonary toxicity [Unknown]
  - Infection [Unknown]
